FAERS Safety Report 5312209-3 (Version None)
Quarter: 2007Q2

REPORT INFORMATION
  Report Type: 
  Country: None (occurrence: None)
  Receive Date: 20070430
  Receipt Date: 20061006
  Transmission Date: 20071010
  Serious: No
  Sender: FDA-Public Use
  Company Number: 2006UW17041

PATIENT
  Age: 61 Year
  Sex: Female
  Weight: 70.3 kg

DRUGS (7)
  1. NEXIUM [Suspect]
     Indication: GASTROOESOPHAGEAL REFLUX DISEASE
     Route: 048
  2. ALLOPURINOL [Concomitant]
  3. TOPROL-XL [Concomitant]
  4. LASIX [Concomitant]
  5. LIPITOR [Concomitant]
  6. COLCHICINE [Concomitant]
  7. ZETIA [Concomitant]

REACTIONS (1)
  - ALOPECIA [None]
